FAERS Safety Report 5555093-5 (Version None)
Quarter: 2007Q4

REPORT INFORMATION
  Report Type: 
  Country: None (occurrence: None)
  Receive Date: 20071213
  Receipt Date: 20071203
  Transmission Date: 20080405
  Serious: Yes (Other)
  Sender: FDA-Public Use
  Company Number: US-PFIZER INC-2007101990

PATIENT
  Sex: Female
  Weight: 61.363 kg

DRUGS (4)
  1. LIPITOR [Suspect]
     Indication: BLOOD CHOLESTEROL INCREASED
  2. LIPITOR [Suspect]
     Indication: HYPERTENSION
  3. NORVASC [Concomitant]
  4. ACCUPRIL [Concomitant]

REACTIONS (7)
  - BLOOD CHOLESTEROL INCREASED [None]
  - FEELING ABNORMAL [None]
  - HYPERSENSITIVITY [None]
  - NERVOUSNESS [None]
  - PHARYNGEAL OEDEMA [None]
  - THROAT IRRITATION [None]
  - TOOTH REPAIR [None]
